FAERS Safety Report 9762582 (Version 1)
Quarter: 2013Q4

REPORT INFORMATION
  Report Type: Spontaneous
  Country: US (occurrence: US)
  Receive Date: 20131216
  Receipt Date: 20131216
  Transmission Date: 20140711
  Serious: No
  Sender: FDA-Public Use
  Company Number: US-BIOGENIDEC-2013BI108643

PATIENT
  Age: 46 Year
  Sex: Female

DRUGS (1)
  1. TECFIDERA [Suspect]
     Indication: MULTIPLE SCLEROSIS
     Route: 048
     Dates: start: 201309

REACTIONS (12)
  - Palpitations [Unknown]
  - Chest pain [Unknown]
  - Dyspnoea [Unknown]
  - Hypoaesthesia [Unknown]
  - Pain in extremity [Unknown]
  - Bipolar disorder [Unknown]
  - Diabetes mellitus [Unknown]
  - Emotional distress [Unknown]
  - Nausea [Unknown]
  - Vomiting [Unknown]
  - Diarrhoea [Unknown]
  - Flushing [Unknown]
